FAERS Safety Report 11870285 (Version 1)
Quarter: 2015Q4

REPORT INFORMATION
  Report Type: Spontaneous
  Country: US (occurrence: None)
  Receive Date: 20151224
  Receipt Date: 20151224
  Transmission Date: 20160305
  Serious: Yes (Hospitalization)
  Sender: FDA-Public Use
  Company Number: None

PATIENT
  Age: 61 Year
  Sex: Male

DRUGS (17)
  1. VANCOMYCIN [Suspect]
     Active Substance: VANCOMYCIN
     Route: 042
  2. FENTANYL. [Concomitant]
     Active Substance: FENTANYL
  3. NOREPINEPHRINE [Concomitant]
     Active Substance: NOREPINEPHRINE\NOREPINEPHRINE BITARTRATE
  4. CHOLECALCIFEROL [Concomitant]
     Active Substance: CHOLECALCIFEROL
  5. PANTOPRAZOLE [Concomitant]
     Active Substance: PANTOPRAZOLE SODIUM
  6. AMIODARONE [Concomitant]
     Active Substance: AMIODARONE
  7. HYDROCORTISONE. [Concomitant]
     Active Substance: HYDROCORTISONE
  8. PSYLLIUM [Concomitant]
     Active Substance: PLANTAGO SEED
  9. ACETAMINOPHEN. [Concomitant]
     Active Substance: ACETAMINOPHEN
  10. TENOFOVIR [Suspect]
     Active Substance: TENOFOVIR
     Indication: INFECTION
     Dosage: EVERY 48 HOURS
     Route: 048
  11. CEFEPIME [Concomitant]
     Active Substance: CEFEPIME HYDROCHLORIDE
  12. CHLORHEXADINE [Concomitant]
     Active Substance: CHLORHEXIDINE
  13. MILRINONE [Concomitant]
     Active Substance: MILRINONE
  14. ZINC OXIDE/CODE LIVER OIL [Concomitant]
  15. INSULIN REGULAR [Concomitant]
     Active Substance: INSULIN NOS
  16. LINEZOLID. [Concomitant]
     Active Substance: LINEZOLID
  17. MAGIC MOUTHWASH [Concomitant]
     Active Substance: DIPHENHYDRAMINE HYDROCHLORIDE\LIDOCAINE HYDROCHLORIDE\NYSTATIN

REACTIONS (6)
  - Pneumonia [None]
  - Acute kidney injury [None]
  - Condition aggravated [None]
  - Encephalomyelitis [None]
  - Continuous haemodiafiltration [None]
  - Antibiotic level above therapeutic [None]

NARRATIVE: CASE EVENT DATE: 20151026
